FAERS Safety Report 7221594-7 (Version None)
Quarter: 2011Q1

REPORT INFORMATION
  Report Type: 
  Country: None (occurrence: None)
  Receive Date: 20110112
  Receipt Date: 20110106
  Transmission Date: 20110831
  Serious: Yes (Other)
  Sender: FDA-Public Use
  Company Number: CHPA2011GB00678

PATIENT

DRUGS (1)
  1. PARACETAMOL [Suspect]
     Dosage: UNK, UNK
     Route: 064

REACTIONS (4)
  - CLEFT LIP AND PALATE [None]
  - OVERDOSE [None]
  - MATERNAL DRUGS AFFECTING FOETUS [None]
  - DRUG EXPOSURE DURING PREGNANCY [None]
